FAERS Safety Report 19306124 (Version 2)
Quarter: 2021Q2

REPORT INFORMATION
  Report Type: Report from Study
  Country: None (occurrence: US)
  Receive Date: 20210526
  Receipt Date: 20210528
  Transmission Date: 20210717
  Serious: Yes (Other)
  Sender: FDA-Public Use
  Company Number: US-BAUSCH-BL-2021-018081

PATIENT
  Age: 19 Year
  Sex: Male

DRUGS (2)
  1. VISUDYNE [Suspect]
     Active Substance: VERTEPORFIN
     Indication: CHOROIDAL OSTEOMA
  2. VISUDYNE [Suspect]
     Active Substance: VERTEPORFIN
     Indication: RETINAL FOVEA DISORDER
     Dosage: SINGLE DOSE
     Route: 042

REACTIONS (1)
  - Cystoid macular oedema [Unknown]
